FAERS Safety Report 14790179 (Version 1)
Quarter: 2018Q2

REPORT INFORMATION
  Report Type: Spontaneous
  Country: CH (occurrence: CH)
  Receive Date: 20180423
  Receipt Date: 20180423
  Transmission Date: 20180711
  Serious: Yes (Other)
  Sender: FDA-Public Use
  Company Number: CH-ASPEN-GLO2018CH003660

PATIENT

DRUGS (1)
  1. LEUKERAN [Suspect]
     Active Substance: CHLORAMBUCIL
     Indication: LYMPHOCYTIC LEUKAEMIA
     Dosage: UNK
     Route: 065

REACTIONS (2)
  - Chronic lymphocytic leukaemia [Unknown]
  - Drug ineffective [Unknown]
